FAERS Safety Report 8795040 (Version 2)
Quarter: 2015Q3

REPORT INFORMATION
  Report Type: Report from Study
  Country: US (occurrence: US)
  Receive Date: 20120917
  Receipt Date: 20150713
  Transmission Date: 20151125
  Serious: Yes (Death, Other)
  Sender: FDA-Public Use
  Company Number: US-ROCHE-1128377

PATIENT
  Sex: Female

DRUGS (28)
  1. RANITIDINE (INTRAVENOUS) [Concomitant]
     Route: 065
  2. FLUCONAZOLE. [Concomitant]
     Active Substance: FLUCONAZOLE
     Route: 048
  3. LASIX [Concomitant]
     Active Substance: FUROSEMIDE
  4. FLONASE (UNITED STATES) [Concomitant]
     Dosage: 2 PUFFS
     Route: 045
  5. MORPHINE [Concomitant]
     Active Substance: MORPHINE
     Route: 048
  6. CARBOPLATIN. [Concomitant]
     Active Substance: CARBOPLATIN
     Route: 042
  7. DIPHENHYDRAMINE HCL [Concomitant]
     Active Substance: DIPHENHYDRAMINE HYDROCHLORIDE
     Route: 042
  8. ZYRTEC [Concomitant]
     Active Substance: CETIRIZINE HYDROCHLORIDE
  9. LEVAQUIN [Concomitant]
     Active Substance: LEVOFLOXACIN
     Route: 048
  10. BACTRIM DS [Concomitant]
     Active Substance: SULFAMETHOXAZOLE\TRIMETHOPRIM
     Dosage: 160-800MG
     Route: 048
  11. AVASTIN [Suspect]
     Active Substance: BEVACIZUMAB
     Indication: MALIGNANT NEOPLASM OF UTERINE ADNEXA
     Route: 042
  12. ZYRTEC [Concomitant]
     Active Substance: CETIRIZINE HYDROCHLORIDE
  13. TAXOL [Concomitant]
     Active Substance: PACLITAXEL
     Route: 042
  14. TAXOL [Concomitant]
     Active Substance: PACLITAXEL
     Route: 042
  15. DEXAMETHASONE. [Concomitant]
     Active Substance: DEXAMETHASONE
     Route: 042
  16. GEMZAR [Concomitant]
     Active Substance: GEMCITABINE HYDROCHLORIDE
  17. CLARITIN [Concomitant]
     Active Substance: LORATADINE
     Route: 048
  18. ZOLOFT [Concomitant]
     Active Substance: SERTRALINE HYDROCHLORIDE
     Route: 048
  19. COMPAZINE [Concomitant]
     Active Substance: PROCHLORPERAZINE MALEATE
     Dosage: Q 4 - 6 HOURS
     Route: 048
  20. AVASTIN [Suspect]
     Active Substance: BEVACIZUMAB
     Route: 042
  21. CARBOPLATIN. [Concomitant]
     Active Substance: CARBOPLATIN
     Route: 042
  22. PALONOSETRON HYDROCHLORIDE [Concomitant]
     Active Substance: PALONOSETRON HYDROCHLORIDE
     Route: 042
  23. HALCION [Concomitant]
     Active Substance: TRIAZOLAM
     Indication: INSOMNIA
     Dosage: HALF TO ONE PRN
     Route: 048
  24. AVASTIN [Suspect]
     Active Substance: BEVACIZUMAB
     Indication: OVARIAN CANCER
     Route: 042
     Dates: start: 200803
  25. CARBOPLATIN. [Concomitant]
     Active Substance: CARBOPLATIN
     Route: 042
  26. LOVENOX [Concomitant]
     Active Substance: ENOXAPARIN SODIUM
  27. ACIDOPHILUS [Concomitant]
     Active Substance: LACTOBACILLUS ACIDOPHILUS
     Route: 048
  28. VICODIN [Concomitant]
     Active Substance: ACETAMINOPHEN\HYDROCODONE BITARTRATE
     Dosage: 5 - 500 MG (1 - 2)
     Route: 048

REACTIONS (62)
  - Pain [Unknown]
  - Joint swelling [Unknown]
  - Hyponatraemia [Unknown]
  - Productive cough [Unknown]
  - Mucous stools [Unknown]
  - Erythema [Unknown]
  - Death [Fatal]
  - Blepharitis [Unknown]
  - Chills [Unknown]
  - Fungal infection [Unknown]
  - Iron deficiency [Unknown]
  - Neoplasm progression [Unknown]
  - Interstitial lung disease [Unknown]
  - Diarrhoea [Unknown]
  - Vomiting [Unknown]
  - Increased tendency to bruise [Unknown]
  - Dizziness postural [Unknown]
  - Asthenia [Unknown]
  - Abdominal pain [Unknown]
  - Pruritus [Unknown]
  - Raynaud^s phenomenon [Unknown]
  - Hypersensitivity [Unknown]
  - Pancytopenia [Unknown]
  - Eye discharge [Unknown]
  - Fatigue [Unknown]
  - Weight decreased [Unknown]
  - Decreased appetite [Unknown]
  - Muscle spasms [Unknown]
  - Anxiety [Unknown]
  - Amnesia [Unknown]
  - Oesophageal candidiasis [Unknown]
  - Upper respiratory tract infection [Unknown]
  - Extrasystoles [Unknown]
  - Depression [Unknown]
  - Dry mouth [Unknown]
  - Leukopenia [Unknown]
  - Cystitis [Unknown]
  - Nasal congestion [Unknown]
  - Rash [Unknown]
  - Dyspnoea [Unknown]
  - Peripheral coldness [Unknown]
  - Eating disorder [Unknown]
  - Abdominal distension [Unknown]
  - Epistaxis [Recovered/Resolved]
  - Ascites [Unknown]
  - Dyspepsia [Unknown]
  - Blood count abnormal [Unknown]
  - Macrocytosis [Unknown]
  - Rhinitis [Unknown]
  - Musculoskeletal chest pain [Unknown]
  - Faeces discoloured [Unknown]
  - Hypoaesthesia [Unknown]
  - Dyspnoea exertional [Recovered/Resolved]
  - Pain in extremity [Unknown]
  - Rhinorrhoea [Unknown]
  - Nausea [Unknown]
  - Gastrointestinal disorder [Unknown]
  - Coating in mouth [Unknown]
  - Dysuria [Unknown]
  - Cardiac murmur [Unknown]
  - Pollakiuria [Unknown]
  - Sinus disorder [Unknown]
